FAERS Safety Report 14749826 (Version 3)
Quarter: 2020Q1

REPORT INFORMATION
  Report Type: Report from Study
  Country: CA (occurrence: CA)
  Receive Date: 20180412
  Receipt Date: 20200129
  Transmission Date: 20200409
  Serious: Yes (Other)
  Sender: FDA-Public Use
  Company Number: CA-BRISTOL-MYERS SQUIBB COMPANY-BMS-2018-031408

PATIENT
  Sex: Female

DRUGS (1)
  1. DASATINIB. [Suspect]
     Active Substance: DASATINIB
     Indication: CHRONIC MYELOID LEUKAEMIA
     Dosage: 100 MILLIGRAM, BID
     Route: 048
     Dates: start: 20130119

REACTIONS (8)
  - Rash [Not Recovered/Not Resolved]
  - Depression [Recovered/Resolved]
  - Off label use [Unknown]
  - Blindness [Not Recovered/Not Resolved]
  - Dizziness [Not Recovered/Not Resolved]
  - Osteoarthritis [Unknown]
  - Tremor [Not Recovered/Not Resolved]
  - Cataract [Unknown]
